FAERS Safety Report 21763814 (Version 1)
Quarter: 2022Q4

REPORT INFORMATION
  Report Type: Spontaneous
  Country: US (occurrence: US)
  Receive Date: 20221222
  Receipt Date: 20221222
  Transmission Date: 20230112
  Serious: No
  Sender: FDA-Public Use
  Company Number: US-Pfizer-202201372399

PATIENT
  Sex: Male
  Weight: 77.11 kg

DRUGS (2)
  1. BENLYSTA [Suspect]
     Active Substance: BELIMUMAB
     Indication: Product used for unknown indication
     Dosage: UNK
  2. PREDNISONE [Suspect]
     Active Substance: PREDNISONE
     Indication: Product used for unknown indication
     Dosage: UNK

REACTIONS (4)
  - COVID-19 [Recovered/Resolved]
  - Post-acute COVID-19 syndrome [Unknown]
  - Asthenia [Recovered/Resolved]
  - SARS-CoV-2 test positive [Recovered/Resolved]
